FAERS Safety Report 7935392-X (Version None)
Quarter: 2011Q4

REPORT INFORMATION
  Report Type: 
  Country: None (occurrence: None)
  Receive Date: 20111122
  Receipt Date: 20111115
  Transmission Date: 20120403
  Serious: Yes (Other)
  Sender: FDA-Public Use
  Company Number: US-MERCK-1108USA00017

PATIENT
  Age: 68 Year
  Sex: Female

DRUGS (1)
  1. FOSAMAX [Suspect]
     Route: 048

REACTIONS (15)
  - SKIN CANCER [None]
  - TOOTH DISORDER [None]
  - UPPER RESPIRATORY TRACT INFECTION [None]
  - OSTEOPOROSIS [None]
  - OSTEONECROSIS OF JAW [None]
  - HYPERTENSION [None]
  - ORAL TORUS [None]
  - ACTINIC KERATOSIS [None]
  - LEUKOPLAKIA [None]
  - CHRONIC OBSTRUCTIVE PULMONARY DISEASE [None]
  - SQUAMOUS CELL CARCINOMA OF SKIN [None]
  - BUNDLE BRANCH BLOCK LEFT [None]
  - BLOOD CHOLESTEROL INCREASED [None]
  - CORONARY ARTERY DISEASE [None]
  - OSTEOARTHRITIS [None]
